FAERS Safety Report 8265699-0 (Version None)
Quarter: 2012Q2

REPORT INFORMATION
  Report Type: 
  Country: None (occurrence: None)
  Receive Date: 20120406
  Receipt Date: 20120330
  Transmission Date: 20120825
  Serious: Yes (Hospitalization)
  Sender: FDA-Public Use
  Company Number: TR-JNJFOC-20120401886

PATIENT

DRUGS (2)
  1. ENOXAPARIN [Concomitant]
     Indication: ANKLE OPERATION
  2. XARELTO [Suspect]
     Indication: ANKLE OPERATION
     Route: 048

REACTIONS (1)
  - PULMONARY EMBOLISM [None]
